FAERS Safety Report 4832785-4 (Version None)
Quarter: 2005Q4

REPORT INFORMATION
  Report Type: 
  Country: None (occurrence: None)
  Receive Date: 20051117
  Receipt Date: 20051117
  Transmission Date: 20060501
  Serious: Yes (Hospitalization)
  Sender: FDA-Public Use
  Company Number: None

PATIENT
  Age: 71 Year
  Sex: Male
  Weight: 72.5755 kg

DRUGS (17)
  1. CHLORPROMAZINE [Suspect]
     Indication: HICCUPS
     Dosage: 25MG   ONCE IV BOLUS  ONE DOSE
     Route: 040
     Dates: start: 20051106, end: 20051106
  2. REQUIP [Suspect]
     Indication: RESTLESS LEGS SYNDROME
     Dosage: 1MG DAILY PO   ABOUT 1 MONTH
     Route: 048
  3. AMOXICILLIN [Concomitant]
  4. ZANTAC [Concomitant]
  5. VITAMIN B COMPLEX CAP [Concomitant]
  6. MULTI-VITAMIN [Concomitant]
  7. BETOPTIC [Concomitant]
  8. DIPIVEFRIN HCL [Concomitant]
  9. CALAN [Concomitant]
  10. LIPITOR [Concomitant]
  11. LASIX [Concomitant]
  12. ASPIRIN [Concomitant]
  13. ALLOPURINOL [Concomitant]
  14. FLOMAX [Concomitant]
  15. ACIPHEX [Concomitant]
  16. ADVAIR DISKUS 100/50 [Concomitant]
  17. MOBIC [Concomitant]

REACTIONS (3)
  - AGITATION [None]
  - DRUG INTERACTION [None]
  - DYSTONIA [None]
